FAERS Safety Report 15436600 (Version 1)
Quarter: 2018Q3

REPORT INFORMATION
  Report Type: Report from Study
  Country: CN (occurrence: CN)
  Receive Date: 20180927
  Receipt Date: 20180927
  Transmission Date: 20181010
  Serious: Yes (Hospitalization)
  Sender: FDA-Public Use
  Company Number: CN-BRISTOL-MYERS SQUIBB COMPANY-BMS-2018-082675

PATIENT
  Age: 73 Year
  Sex: Male
  Weight: 72 kg

DRUGS (12)
  1. CEFDINIR. [Concomitant]
     Active Substance: CEFDINIR
     Indication: PRODUCT USED FOR UNKNOWN INDICATION
     Route: 065
  2. FOSFOMYCIN TROMETAMOL [Concomitant]
     Active Substance: FOSFOMYCIN TROMETHAMINE
     Indication: PRODUCT USED FOR UNKNOWN INDICATION
     Route: 065
  3. FINASTERIDE. [Concomitant]
     Active Substance: FINASTERIDE
     Indication: PRODUCT USED FOR UNKNOWN INDICATION
     Dosage: UNK
     Route: 065
  4. AMINOMETHYLBENZOIC ACID [Concomitant]
     Active Substance: AMINOMETHYLBENZOIC ACID
     Indication: PRODUCT USED FOR UNKNOWN INDICATION
     Route: 065
  5. IPILIMUMAB [Suspect]
     Active Substance: IPILIMUMAB
     Indication: SMALL CELL LUNG CANCER EXTENSIVE STAGE
     Dosage: 100 ML, UNK
     Route: 042
     Dates: start: 20180808
  6. SULPERAZON [Concomitant]
     Active Substance: CEFOPERAZONE SODIUM\SULBACTAM SODIUM
     Indication: PRODUCT USED FOR UNKNOWN INDICATION
     Route: 065
  7. KETOROLAC TROMETHAMINE. [Concomitant]
     Active Substance: KETOROLAC TROMETHAMINE
     Indication: PRODUCT USED FOR UNKNOWN INDICATION
     Route: 065
  8. METHYLPREDNISOLONE SODIUM SUCCINATE. [Concomitant]
     Active Substance: METHYLPREDNISOLONE SODIUM SUCCINATE
     Indication: PRODUCT USED FOR UNKNOWN INDICATION
     Route: 065
  9. ETAMSYLATE [Concomitant]
     Active Substance: ETHAMSYLATE
     Indication: PRODUCT USED FOR UNKNOWN INDICATION
     Route: 065
  10. DOXAZOSIN MESYLATE. [Concomitant]
     Active Substance: DOXAZOSIN MESYLATE
     Indication: PRODUCT USED FOR UNKNOWN INDICATION
     Route: 065
  11. NIVOLUMAB [Suspect]
     Active Substance: NIVOLUMAB
     Indication: SMALL CELL LUNG CANCER EXTENSIVE STAGE
     Dosage: 100 ML, UNK
     Route: 042
     Dates: start: 20180808
  12. FURACILIN [Concomitant]
     Indication: PRODUCT USED FOR UNKNOWN INDICATION
     Route: 065

REACTIONS (1)
  - Cystitis [Not Recovered/Not Resolved]

NARRATIVE: CASE EVENT DATE: 20180905
